FAERS Safety Report 13771751 (Version 1)
Quarter: 2017Q3

REPORT INFORMATION
  Report Type: Spontaneous
  Country: US (occurrence: US)
  Receive Date: 20170720
  Receipt Date: 20170720
  Transmission Date: 20171127
  Serious: No
  Sender: FDA-Public Use
  Company Number: US-PFIZER INC-2017313544

PATIENT
  Age: 74 Year
  Sex: Female
  Weight: 205 kg

DRUGS (4)
  1. SILDENAFIL CITRATE. [Concomitant]
     Active Substance: SILDENAFIL CITRATE
     Dosage: UNK
  2. ORENITRAM [Suspect]
     Active Substance: TREPROSTINIL
     Dosage: UNK
     Route: 048
  3. NEURONTIN [Suspect]
     Active Substance: GABAPENTIN
     Dosage: UNK
  4. ORENITRAM [Suspect]
     Active Substance: TREPROSTINIL
     Indication: PULMONARY ARTERIAL HYPERTENSION
     Dosage: 1.125 MG, 3X/DAY
     Route: 048
     Dates: start: 20170417

REACTIONS (5)
  - Pain in extremity [Unknown]
  - Diarrhoea [Unknown]
  - Dry mouth [Unknown]
  - Peripheral swelling [Unknown]
  - Tremor [Unknown]

NARRATIVE: CASE EVENT DATE: 2017
